FAERS Safety Report 7496058-6 (Version None)
Quarter: 2011Q2

REPORT INFORMATION
  Report Type: 
  Country: None (occurrence: None)
  Receive Date: 20110513
  Receipt Date: 20110429
  Transmission Date: 20111010
  Serious: Yes (Hospitalization)
  Sender: FDA-Public Use
  Company Number: 2010000444

PATIENT
  Age: 53 Year
  Sex: Female

DRUGS (15)
  1. THERA PLUS VITAMINS (MULTIVITAMINS WITYH MINERALS) [Concomitant]
  2. MINOCYCLINE HCL [Concomitant]
  3. LEVAQUIN [Concomitant]
  4. BEVACIZUMAB [Suspect]
     Indication: LUNG NEOPLASM MALIGNANT
     Dosage: 15 MG/KG, Q3W, INTRAVENOUS
     Route: 042
     Dates: start: 20080723, end: 20091224
  5. PHENERGAN HCL [Concomitant]
  6. ERLOTINIB HYDROCHLORIDE [Suspect]
  7. BEVACIZUMAB [Suspect]
  8. LORTAB (VICODIN) [Concomitant]
  9. 4 LIFE TRANSFER FACTOR (TRANSFER FACTOR) [Concomitant]
  10. ZOFRAN [Concomitant]
  11. LISINOPRIL [Concomitant]
  12. CIPRO [Concomitant]
  13. ERLOTINIB (ERLOTINIB) (TABLET) [Suspect]
     Indication: LUNG NEOPLASM MALIGNANT
     Dosage: 50 MG, DAILY, ORAL
     Route: 048
     Dates: start: 20080723, end: 20110418
  14. LOVENOX [Concomitant]
  15. FENTANYL [Concomitant]

REACTIONS (14)
  - BRONCHITIS VIRAL [None]
  - GASTROOESOPHAGEAL REFLUX DISEASE [None]
  - FUNGAL SEPSIS [None]
  - DEVICE RELATED INFECTION [None]
  - PLATELET COUNT DECREASED [None]
  - PERICARDIAL EFFUSION [None]
  - PULMONARY HYPERTENSION [None]
  - DERMATITIS ACNEIFORM [None]
  - DIASTOLIC DYSFUNCTION [None]
  - REGURGITATION [None]
  - RASH [None]
  - CANDIDIASIS [None]
  - TRICUSPID VALVE INCOMPETENCE [None]
  - PLEURAL EFFUSION [None]
